FAERS Safety Report 24877659 (Version 2)
Quarter: 2025Q1

REPORT INFORMATION
  Report Type: Report from Study
  Country: US (occurrence: US)
  Receive Date: 20250123
  Receipt Date: 20250228
  Transmission Date: 20250409
  Serious: No
  Sender: SUNOVION
  Company Number: US-SUMITOMO PHARMA SWITZERLAND GMBH-2025SPA000347

PATIENT

DRUGS (2)
  1. ORGOVYX [Suspect]
     Active Substance: RELUGOLIX
     Indication: Prostate cancer
     Dosage: 360 MG, SINGLE
     Route: 048
     Dates: start: 20250106, end: 20250106
  2. ORGOVYX [Suspect]
     Active Substance: RELUGOLIX
     Dosage: 120 MG, QD
     Route: 048
     Dates: start: 20250107

REACTIONS (11)
  - Memory impairment [Unknown]
  - Lethargy [Unknown]
  - Exercise tolerance decreased [Unknown]
  - Vision blurred [Unknown]
  - Pain [Recovered/Resolved]
  - Implant site infection [Unknown]
  - Pollakiuria [Unknown]
  - Urinary tract infection [Unknown]
  - Affective disorder [Unknown]
  - Dizziness [Unknown]
  - Asthenia [Unknown]
